FAERS Safety Report 9279018 (Version 1)
Quarter: 2013Q2

REPORT INFORMATION
  Report Type: Spontaneous
  Country: US (occurrence: US)
  Receive Date: 20130508
  Receipt Date: 20130508
  Transmission Date: 20140414
  Serious: Yes (Other)
  Sender: FDA-Public Use
  Company Number: US-ELI_LILLY_AND_COMPANY-US201305000915

PATIENT
  Sex: Male

DRUGS (1)
  1. FORTEO [Suspect]
     Dosage: UNK, QD

REACTIONS (4)
  - Cardiac failure congestive [Unknown]
  - Myalgia [Unknown]
  - Weight increased [Unknown]
  - Red blood cell count decreased [Unknown]
